FAERS Safety Report 4465322-7 (Version None)
Quarter: 2004Q4

REPORT INFORMATION
  Report Type: 
  Country: None (occurrence: None)
  Receive Date: 20041004
  Receipt Date: 20030605
  Transmission Date: 20050328
  Serious: Yes (Disabling, Other)
  Sender: FDA-Public Use
  Company Number: US-MERCK-0306USA00895

PATIENT
  Age: 41 Year
  Sex: Female
  Weight: 81 kg

DRUGS (3)
  1. CLARITIN-D [Concomitant]
     Route: 065
     Dates: start: 20010801
  2. ROBAXIN [Concomitant]
     Route: 065
     Dates: start: 20010801
  3. VIOXX [Suspect]
     Route: 048
     Dates: start: 20010801

REACTIONS (9)
  - ADVERSE EVENT [None]
  - DERMAL CYST [None]
  - DIPLOPIA [None]
  - DIZZINESS [None]
  - HEADACHE [None]
  - MALAISE [None]
  - MENORRHAGIA [None]
  - POLYTRAUMATISM [None]
  - SINUSITIS [None]
